FAERS Safety Report 5563811-5 (Version None)
Quarter: 2007Q4

REPORT INFORMATION
  Report Type: 
  Country: None (occurrence: None)
  Receive Date: 20071217
  Receipt Date: 20070827
  Transmission Date: 20080405
  Serious: No
  Sender: FDA-Public Use
  Company Number: US-ASTRAZENECA-2007UW20469

PATIENT
  Age: 69 Year
  Sex: Female
  Weight: 61.2 kg

DRUGS (5)
  1. CRESTOR [Suspect]
     Indication: BLOOD CHOLESTEROL INCREASED
     Route: 048
  2. ALDACTONE [Concomitant]
  3. LASIX [Concomitant]
  4. ALTACE [Concomitant]
  5. ULTRAM [Concomitant]

REACTIONS (2)
  - ASTHENIA [None]
  - DECREASED APPETITE [None]
